FAERS Safety Report 9351432 (Version 1)
Quarter: 2013Q2

REPORT INFORMATION
  Report Type: Spontaneous
  Country: US (occurrence: US)
  Receive Date: 20130617
  Receipt Date: 20130617
  Transmission Date: 20140414
  Serious: No
  Sender: FDA-Public Use
  Company Number: US-UPSHER-SMITH LABORATORIES, INC.-13001863

PATIENT
  Sex: Male

DRUGS (3)
  1. PREVALITE [Suspect]
     Indication: DIARRHOEA
     Dosage: 4.5 G, QD
     Route: 048
     Dates: start: 2008, end: 201212
  2. PSYLLIUM HYDROPHILIC MUCILLOID [Concomitant]
     Dosage: UNK
  3. VITAMINS NOS [Concomitant]
     Dosage: UNK

REACTIONS (2)
  - Pancreatitis [Not Recovered/Not Resolved]
  - Weight increased [Recovered/Resolved]
